FAERS Safety Report 18152114 (Version 2)
Quarter: 2020Q3

REPORT INFORMATION
  Report Type: Spontaneous
  Country: GB (occurrence: GB)
  Receive Date: 20200814
  Receipt Date: 20200904
  Transmission Date: 20201103
  Serious: Yes (Hospitalization, Other)
  Sender: FDA-Public Use
  Company Number: GB-TORRENT-00023931

PATIENT
  Age: 47 Year
  Sex: Female
  Weight: 83 kg

DRUGS (5)
  1. CALCIUM CARBONATE. [Interacting]
     Active Substance: CALCIUM CARBONATE
     Indication: DYSPEPSIA
     Dosage: INGESTING UP TO 9 TABLETS OF CALCIUM CARBONATE (4,500 MG IN TOTAL) EVERY DAY FOR 2 YEARS.
     Route: 048
  2. LOSARTAN. [Suspect]
     Active Substance: LOSARTAN
     Indication: HYPERTENSION
     Dosage: UNKNOWN
     Dates: start: 2014, end: 20190722
  3. SIMVASTATIN. [Concomitant]
     Active Substance: SIMVASTATIN
     Indication: PRODUCT USED FOR UNKNOWN INDICATION
     Dosage: UNKNOWN
  4. BUPRENORPHINE. [Concomitant]
     Active Substance: BUPRENORPHINE
     Indication: PRODUCT USED FOR UNKNOWN INDICATION
     Dosage: UNKNOWN
     Route: 062
  5. PARACETAMOL [Concomitant]
     Active Substance: ACETAMINOPHEN
     Indication: PRODUCT USED FOR UNKNOWN INDICATION
     Dosage: UNKNOWN

REACTIONS (10)
  - Vitamin D deficiency [Recovered/Resolved]
  - Drug interaction [Recovered/Resolved]
  - Prescription drug used without a prescription [Recovered/Resolved]
  - Renal impairment [Recovering/Resolving]
  - Condition aggravated [Recovered/Resolved]
  - Hypotension [Recovered/Resolved]
  - Nephrolithiasis [Recovered/Resolved]
  - Hypercalcaemia [Recovered/Resolved]
  - Intentional overdose [Recovered/Resolved]
  - Milk-alkali syndrome [Recovered/Resolved]

NARRATIVE: CASE EVENT DATE: 2019
